FAERS Safety Report 22312178 (Version 1)
Quarter: 2023Q2

REPORT INFORMATION
  Report Type: Report from Study
  Country: US (occurrence: US)
  Receive Date: 20230512
  Receipt Date: 20230512
  Transmission Date: 20230722
  Serious: Yes (Other)
  Sender: FDA-Public Use
  Company Number: US-ABBVIE-4305862

PATIENT
  Sex: Male

DRUGS (3)
  1. VENCLEXTA [Suspect]
     Active Substance: VENETOCLAX
     Indication: Chronic lymphocytic leukaemia
     Dosage: FORM STRENGTH: 100MG
     Route: 048
     Dates: start: 2019
  2. PREDNISONE [Concomitant]
     Active Substance: PREDNISONE
     Indication: Pain
     Route: 048
  3. ALLOPURINOL [Concomitant]
     Active Substance: ALLOPURINOL
     Indication: Pain
     Dosage: FORM STRENGTH 300 MG
     Route: 048

REACTIONS (9)
  - Fall [Unknown]
  - Chronic lymphocytic leukaemia [Not Recovered/Not Resolved]
  - Diarrhoea [Unknown]
  - Bone disorder [Unknown]
  - Weight decreased [Not Recovered/Not Resolved]
  - Pain in extremity [Recovered/Resolved]
  - Hypoacusis [Unknown]
  - Muscle strain [Unknown]
  - Product prescribing error [Unknown]

NARRATIVE: CASE EVENT DATE: 20220101
